FAERS Safety Report 21474723 (Version 4)
Quarter: 2023Q2

REPORT INFORMATION
  Report Type: Report from Study
  Country: None (occurrence: US)
  Receive Date: 20221018
  Receipt Date: 20230509
  Transmission Date: 20230722
  Serious: Yes (Death, Life-Threatening, Hospitalization)
  Sender: FDA-Public Use
  Company Number: US-Jiangsu Hengrui Medicine Co., Ltd.-2133951

PATIENT
  Age: 17 Year
  Sex: Female
  Weight: 85 kg

DRUGS (6)
  1. CYCLOPHOSPHAMIDE [Suspect]
     Active Substance: CYCLOPHOSPHAMIDE
     Indication: Recurrent cancer
     Dates: start: 20220820, end: 20220824
  2. TOPOTECAN HYDROCHLORIDE [Suspect]
     Active Substance: TOPOTECAN HYDROCHLORIDE
     Dates: start: 20220820, end: 20220824
  3. VENETOCLAX [Suspect]
     Active Substance: VENETOCLAX
     Route: 048
     Dates: start: 20220818, end: 20220827
  4. LEVOTHYROXINE [Concomitant]
     Active Substance: LEVOTHYROXINE
     Dates: start: 20220608
  5. GABAPENTIN [Concomitant]
     Active Substance: GABAPENTIN
     Dates: start: 20201110, end: 20220919
  6. URSODIOL ZENTIVA [Concomitant]
     Dates: start: 20220830

REACTIONS (3)
  - Pneumonia fungal [Fatal]
  - Sepsis [Not Recovered/Not Resolved]
  - Multiple organ dysfunction syndrome [Fatal]

NARRATIVE: CASE EVENT DATE: 20220830
